FAERS Safety Report 9282104 (Version 1)
Quarter: 2013Q2

REPORT INFORMATION
  Report Type: Spontaneous
  Country: US (occurrence: None)
  Receive Date: 20130508
  Receipt Date: 20130508
  Transmission Date: 20140414
  Serious: Yes (Other)
  Sender: FDA-Public Use
  Company Number: None

PATIENT
  Age: 57 Year
  Sex: Female
  Weight: 55 kg

DRUGS (3)
  1. WARFARIN [Suspect]
     Dosage: VARIED QD PO
     Route: 048
     Dates: start: 20101015, end: 20101018
  2. ASPIRIN [Concomitant]
  3. VANCOMYCIN [Concomitant]

REACTIONS (3)
  - Pleural effusion [None]
  - Dyspnoea [None]
  - Haemoglobin decreased [None]
